FAERS Safety Report 20505342 (Version 2)
Quarter: 2022Q1

REPORT INFORMATION
  Report Type: Report from Study
  Country: KR (occurrence: KR)
  Receive Date: 20220223
  Receipt Date: 20220323
  Transmission Date: 20220423
  Serious: Yes (Hospitalization)
  Sender: FDA-Public Use
  Company Number: KP-Clinigen Group PLC/ Clinigen Healthcare Ltd-KR-CLGN-22-00060

PATIENT
  Age: 73 Year
  Sex: Male
  Weight: 51.3 kg

DRUGS (20)
  1. PROLEUKIN [Suspect]
     Active Substance: ALDESLEUKIN
     Indication: Neoplasm
     Route: 058
     Dates: start: 20220124, end: 20220127
  2. OXYCODONE [Concomitant]
     Active Substance: OXYCODONE
     Indication: Pain
     Route: 048
     Dates: start: 20211223, end: 20220123
  3. OXYCODONE [Concomitant]
     Active Substance: OXYCODONE
     Indication: Abdominal pain
     Route: 048
     Dates: start: 20220124
  4. URSODIOL [Concomitant]
     Active Substance: URSODIOL
     Indication: Prophylaxis
     Route: 048
     Dates: start: 20211209
  5. DIETARY SUPPLEMENT\HERBALS\MILK THISTLE [Concomitant]
     Active Substance: DIETARY SUPPLEMENT\HERBALS\MILK THISTLE
     Indication: Prophylaxis
     Route: 048
     Dates: start: 20211209
  6. BEECOM [Concomitant]
     Indication: Prophylaxis
     Route: 048
     Dates: start: 20211209
  7. LEVOTHYROXINE [Concomitant]
     Active Substance: LEVOTHYROXINE
     Indication: Hypothyroidism
     Route: 048
     Dates: start: 2021
  8. METFORMIN HYDROCHLORIDE [Concomitant]
     Active Substance: METFORMIN HYDROCHLORIDE
     Indication: Diabetes mellitus
     Route: 048
     Dates: start: 20220112
  9. MEGESTROL ACETATE [Concomitant]
     Active Substance: MEGESTROL ACETATE
     Indication: Decreased appetite
     Route: 048
     Dates: start: 2022
  10. INSULIN GLARGINE [Concomitant]
     Active Substance: INSULIN GLARGINE
     Indication: Diabetes mellitus
     Route: 058
     Dates: start: 20220113, end: 20220113
  11. INSULIN GLARGINE [Concomitant]
     Active Substance: INSULIN GLARGINE
     Route: 058
     Dates: start: 20220124
  12. GEMIGLIPTIN [Concomitant]
     Active Substance: GEMIGLIPTIN
     Indication: Diabetes mellitus
     Route: 048
     Dates: start: 20220126
  13. MAGNESIUM OXIDE [Concomitant]
     Active Substance: MAGNESIUM OXIDE
     Indication: Constipation
     Route: 048
     Dates: start: 20220128
  14. GLIMA M [Concomitant]
     Indication: Diabetes mellitus
     Dosage: 2/500 MG
     Route: 048
     Dates: start: 2021, end: 20220125
  15. NESINA [Concomitant]
     Active Substance: ALOGLIPTIN BENZOATE
     Indication: Diabetes mellitus
     Route: 048
     Dates: start: 2021
  16. LACTULOSE [Concomitant]
     Active Substance: LACTULOSE
     Indication: Constipation
     Route: 048
     Dates: start: 2022
  17. METOCLOPRAMIDE [Concomitant]
     Active Substance: METOCLOPRAMIDE
     Indication: Nausea
     Route: 042
     Dates: start: 20220111, end: 20220114
  18. PHAZYME COMPLEX [Concomitant]
     Indication: Nausea
     Route: 048
     Dates: start: 20220111, end: 20220115
  19. ACETAMINOPHEN [Concomitant]
     Active Substance: ACETAMINOPHEN
     Indication: Pyrexia
     Route: 048
     Dates: start: 20220112, end: 20220115
  20. PACETA [Concomitant]
     Indication: Pyrexia
     Route: 042
     Dates: start: 20220114, end: 20220114

REACTIONS (1)
  - Cytokine release syndrome [Recovered/Resolved]

NARRATIVE: CASE EVENT DATE: 20220128
